FAERS Safety Report 17554396 (Version 3)
Quarter: 2021Q3

REPORT INFORMATION
  Report Type: Report from Study
  Country: US (occurrence: US)
  Receive Date: 20200318
  Receipt Date: 20210826
  Transmission Date: 20211014
  Serious: Yes (Other)
  Sender: FDA-Public Use
  Company Number: US-SHIRE-US202010016

PATIENT
  Sex: Female
  Weight: 95 kg

DRUGS (18)
  1. AZITHROMYCIN ANHYDROUS. [Concomitant]
     Active Substance: AZITHROMYCIN ANHYDROUS
     Indication: PRODUCT USED FOR UNKNOWN INDICATION
  2. CALCIUM CITRATE [Concomitant]
     Active Substance: CALCIUM CITRATE
     Indication: PRODUCT USED FOR UNKNOWN INDICATION
  3. VITAMIN D [Concomitant]
     Active Substance: VITAMIN D NOS
     Dosage: UNK
     Route: 065
  4. SYMBICORT [Concomitant]
     Active Substance: BUDESONIDE\FORMOTEROL FUMARATE DIHYDRATE
     Indication: PRODUCT USED FOR UNKNOWN INDICATION
  5. ALFA 1?ANTITRYPSIN [Suspect]
     Active Substance: .ALPHA.1-PROTEINASE INHIBITOR HUMAN
     Indication: ALPHA-1 ANTITRYPSIN DEFICIENCY
     Dosage: 60 MILLIGRAM/KILOGRAM, 1/WEEK
     Route: 042
     Dates: start: 20100503
  6. BUPROPION. [Concomitant]
     Active Substance: BUPROPION
  7. ALFA 1?ANTITRYPSIN [Suspect]
     Active Substance: .ALPHA.1-PROTEINASE INHIBITOR HUMAN
     Indication: ALPHA-1 ANTITRYPSIN DEFICIENCY
     Dosage: 60 MILLIGRAM/KILOGRAM, 1/WEEK
     Route: 042
     Dates: start: 20100503
  8. PANTOPRAZOLE [Concomitant]
     Active Substance: PANTOPRAZOLE
     Indication: PRODUCT USED FOR UNKNOWN INDICATION
  9. MULTIVITAMINS [VITAMINS NOS] [Concomitant]
     Active Substance: VITAMINS
     Indication: PRODUCT USED FOR UNKNOWN INDICATION
  10. DIPHENHYDRAMINE. [Concomitant]
     Active Substance: DIPHENHYDRAMINE
     Indication: PRODUCT USED FOR UNKNOWN INDICATION
  11. ALFA 1?ANTITRYPSIN [Suspect]
     Active Substance: .ALPHA.1-PROTEINASE INHIBITOR HUMAN
     Indication: EMPHYSEMA
     Dosage: 60 MILLIGRAM/KILOGRAM, 1/WEEK
     Route: 042
     Dates: start: 20190626
  12. SPIRIVA [Concomitant]
     Active Substance: TIOTROPIUM BROMIDE MONOHYDRATE
     Indication: PRODUCT USED FOR UNKNOWN INDICATION
  13. EPINEPHRINE. [Concomitant]
     Active Substance: EPINEPHRINE
     Indication: PRODUCT USED FOR UNKNOWN INDICATION
  14. LEVAQUIN [Concomitant]
     Active Substance: LEVOFLOXACIN
     Indication: PRODUCT USED FOR UNKNOWN INDICATION
  15. ALFA 1?ANTITRYPSIN [Suspect]
     Active Substance: .ALPHA.1-PROTEINASE INHIBITOR HUMAN
     Indication: EMPHYSEMA
     Dosage: 60 MILLIGRAM/KILOGRAM, 1/WEEK
     Route: 042
     Dates: start: 20190626
  16. VITAMIN D2 [Concomitant]
     Active Substance: ERGOCALCIFEROL
     Indication: PRODUCT USED FOR UNKNOWN INDICATION
  17. LIDOCAINE. [Concomitant]
     Active Substance: LIDOCAINE
     Indication: PRODUCT USED FOR UNKNOWN INDICATION
  18. SODIUM CHLORIDE. [Concomitant]
     Active Substance: SODIUM CHLORIDE
     Indication: PRODUCT USED FOR UNKNOWN INDICATION

REACTIONS (3)
  - Pneumonia [Unknown]
  - Sinusitis [Unknown]
  - Weight decreased [Unknown]
